FAERS Safety Report 9499385 (Version 1)
Quarter: 2013Q3

REPORT INFORMATION
  Report Type: Spontaneous
  Country: JP (occurrence: JP)
  Receive Date: 20130905
  Receipt Date: 20130905
  Transmission Date: 20140515
  Serious: Yes (Death, Other)
  Sender: FDA-Public Use
  Company Number: JP-ROCHE-1270366

PATIENT
  Age: 60 Year
  Sex: Female

DRUGS (3)
  1. BEVACIZUMAB [Suspect]
     Indication: ADENOCARCINOMA
     Route: 065
  2. PACLITAXEL [Suspect]
     Indication: ADENOCARCINOMA
     Route: 065
  3. CARBOPLATIN [Suspect]
     Indication: ADENOCARCINOMA
     Route: 065

REACTIONS (2)
  - Respiratory failure [Fatal]
  - Tracheal fistula [Unknown]
